FAERS Safety Report 12797274 (Version 1)
Quarter: 2016Q3

REPORT INFORMATION
  Report Type: Report from Study
  Country: CA (occurrence: CA)
  Receive Date: 20160930
  Receipt Date: 20160930
  Transmission Date: 20161109
  Serious: Yes (Other)
  Sender: FDA-Public Use
  Company Number: CA-ROCHE-1833049

PATIENT
  Age: 73 Year
  Sex: Male
  Weight: 64.4 kg

DRUGS (9)
  1. TEMSIROLIMUS [Suspect]
     Active Substance: TEMSIROLIMUS
     Dosage: ON DAYS 1, 8, 15 AND 22 EVERY 28 DAYS
     Route: 042
     Dates: start: 20101019
  2. BEVACIZUMAB [Suspect]
     Active Substance: BEVACIZUMAB
     Dosage: OVER 30-90 MINUTES ON DAY 1 AND DAY 15 IN 28 DAYS CYCLE?ALSO RECEIVED ON 11/JAN/2011
     Route: 042
     Dates: start: 20101214
  3. TEMSIROLIMUS [Suspect]
     Active Substance: TEMSIROLIMUS
     Dosage: ON DAYS 1, 8, 15 AND 22 EVERY 28 DAYS
     Route: 042
     Dates: start: 20101214
  4. TEMSIROLIMUS [Suspect]
     Active Substance: TEMSIROLIMUS
     Indication: HEPATOCELLULAR CARCINOMA
     Dosage: ON DAYS 1, 8, 15 AND 22 EVERY 28 DAYS?ALSO RECEIVED ON 24/AUG/2010, 21/SEP/2010
     Route: 042
     Dates: start: 20100727
  5. BEVACIZUMAB [Suspect]
     Active Substance: BEVACIZUMAB
     Dosage: OVER 30-90 MINUTES ON DAY 1 AND DAY 15 IN 28 DAYS CYCLE?ALSO RECIEVED ON 08/FEB/2011
     Route: 042
     Dates: start: 20101116
  6. TEMSIROLIMUS [Suspect]
     Active Substance: TEMSIROLIMUS
     Dosage: ON DAYS 1, 8, 15 AND 22 EVERY 28 DAYS
     Route: 042
     Dates: start: 20110208
  7. TEMSIROLIMUS [Suspect]
     Active Substance: TEMSIROLIMUS
     Dosage: ON DAYS 1, 8, 15 AND 22 EVERY 28 DAYS
     Route: 042
     Dates: start: 20101116
  8. TEMSIROLIMUS [Suspect]
     Active Substance: TEMSIROLIMUS
     Dosage: ON DAYS 1, 8, 15 AND 22 EVERY 28 DAYS
     Route: 042
     Dates: start: 20110111
  9. BEVACIZUMAB [Suspect]
     Active Substance: BEVACIZUMAB
     Indication: HEPATOCELLULAR CARCINOMA
     Dosage: OVER 30-90 MINUTES ON DAY 1 AND DAY 15 IN 28 DAYS CYCLE?ALSO RECEIVED ON 24/AUG/2010, 21/SEP/2010, 1
     Route: 042
     Dates: start: 20100727

REACTIONS (1)
  - Anaemia [Unknown]
